FAERS Safety Report 12181151 (Version 4)
Quarter: 2019Q3

REPORT INFORMATION
  Report Type: Spontaneous
  Country: US (occurrence: US)
  Receive Date: 20160315
  Receipt Date: 20190919
  Transmission Date: 20191004
  Serious: Yes (Other)
  Sender: FDA-Public Use
  Company Number: US-PFIZER INC-2016156754

PATIENT
  Age: 46 Year
  Sex: Female

DRUGS (1)
  1. DAYPRO [Suspect]
     Active Substance: OXAPROZIN
     Dosage: UNK
     Route: 048

REACTIONS (3)
  - Diarrhoea haemorrhagic [Unknown]
  - Drug hypersensitivity [Unknown]
  - Urticaria [Unknown]
